FAERS Safety Report 9705357 (Version 1)
Quarter: 2013Q4

REPORT INFORMATION
  Report Type: Spontaneous
  Country: US (occurrence: US)
  Receive Date: 20131122
  Receipt Date: 20131122
  Transmission Date: 20140711
  Serious: Yes (Other)
  Sender: FDA-Public Use
  Company Number: US-BRISTOL-MYERS SQUIBB COMPANY-19849157

PATIENT
  Age: 55 Year
  Sex: Male
  Weight: 77 kg

DRUGS (6)
  1. METFORMIN HCL [Suspect]
  2. COUMADIN [Suspect]
     Indication: THROMBOSIS
  3. SUTENT [Suspect]
  4. INTERLEUKIN-2 [Suspect]
  5. ATENOLOL [Concomitant]
  6. LISINOPRIL [Concomitant]

REACTIONS (8)
  - Thrombosis [Unknown]
  - Epistaxis [Unknown]
  - Stomatitis [Unknown]
  - International normalised ratio increased [Unknown]
  - Palmar-plantar erythrodysaesthesia syndrome [Unknown]
  - Nausea [Unknown]
  - Abdominal discomfort [Unknown]
  - Dysgeusia [Unknown]
